FAERS Safety Report 23665351 (Version 6)
Quarter: 2024Q2

REPORT INFORMATION
  Report Type: Report from Study
  Country: US (occurrence: US)
  Receive Date: 20240322
  Receipt Date: 20240426
  Transmission Date: 20240716
  Serious: Yes (Other)
  Sender: FDA-Public Use
  Company Number: US-ABBVIE-5681019

PATIENT
  Age: 73 Year
  Sex: Female
  Weight: 69.853 kg

DRUGS (9)
  1. SKYRIZI [Suspect]
     Active Substance: RISANKIZUMAB-RZAA
     Indication: Gastrooesophageal reflux disease
     Dosage: FORM STRENGTH: 360 MILLIGRAM
     Route: 058
     Dates: start: 20240124, end: 20240124
  2. SKYRIZI [Suspect]
     Active Substance: RISANKIZUMAB-RZAA
     Dosage: FORM STRENGTH: 360 MILLIGRAM
     Route: 058
     Dates: start: 20231127, end: 20231127
  3. SKYRIZI [Suspect]
     Active Substance: RISANKIZUMAB-RZAA
     Dosage: FORM STRENGTH: 360 MILLIGRAM?SKYRIZI 360 MG/2.4ML
     Route: 058
     Dates: start: 20231004, end: 20231004
  4. SKYRIZI [Suspect]
     Active Substance: RISANKIZUMAB-RZAA
     Dosage: FORM STRENGTH: 360 MILLIGRAM
     Route: 058
     Dates: start: 20240322
  5. SKYRIZI [Suspect]
     Active Substance: RISANKIZUMAB-RZAA
     Indication: Crohn^s disease
     Dosage: 2ND INFUSION
     Route: 042
     Dates: start: 20230809, end: 20230809
  6. SKYRIZI [Suspect]
     Active Substance: RISANKIZUMAB-RZAA
     Indication: Crohn^s disease
     Dosage: 1ST INFUSION
     Route: 042
     Dates: start: 20230712, end: 20230712
  7. TYLENOL PM [Concomitant]
     Active Substance: ACETAMINOPHEN\DIPHENHYDRAMINE
     Indication: Back pain
  8. ACETAMINOPHEN [Concomitant]
     Active Substance: ACETAMINOPHEN
     Indication: Product used for unknown indication
  9. HEPATITIS B VIRUS VACCINE [Concomitant]
     Active Substance: HEPATITIS B VIRUS VACCINE
     Indication: Product used for unknown indication
     Route: 065
     Dates: start: 201409

REACTIONS (14)
  - Liver function test increased [Not Recovered/Not Resolved]
  - Fatigue [Not Recovered/Not Resolved]
  - Basal cell carcinoma [Not Recovered/Not Resolved]
  - Pruritus [Not Recovered/Not Resolved]
  - Chromaturia [Not Recovered/Not Resolved]
  - Adverse drug reaction [Unknown]
  - Hepatitis [Not Recovered/Not Resolved]
  - Crohn^s disease [Unknown]
  - Hepatitis viral test positive [Unknown]
  - Hepatic steatosis [Unknown]
  - Hepatic failure [Not Recovered/Not Resolved]
  - Cholelithiasis [Unknown]
  - Hepatic enzyme increased [Not Recovered/Not Resolved]
  - Cholelithiasis [Unknown]

NARRATIVE: CASE EVENT DATE: 20230712
